FAERS Safety Report 13502880 (Version 1)
Quarter: 2017Q2

REPORT INFORMATION
  Report Type: Spontaneous
  Country: JP (occurrence: JP)
  Receive Date: 20170502
  Receipt Date: 20170502
  Transmission Date: 20170830
  Serious: Yes (Hospitalization)
  Sender: FDA-Public Use
  Company Number: JP-GUERBET-JP-20170024

PATIENT
  Age: 34 Year
  Sex: Female

DRUGS (1)
  1. LIPIODOL [Suspect]
     Active Substance: ETHIODIZED OIL
     Indication: HYSTEROSALPINGOGRAM
     Route: 065
     Dates: start: 2007, end: 2007

REACTIONS (9)
  - Caesarean section [None]
  - Haemorrhagic ascites [None]
  - Twin pregnancy [None]
  - Maternal exposure before pregnancy [Recovered/Resolved]
  - Abdominal pain lower [None]
  - Medication residue present [Recovered/Resolved]
  - Dysmenorrhoea [None]
  - Premature rupture of membranes [None]
  - Breech presentation [None]

NARRATIVE: CASE EVENT DATE: 2007
